FAERS Safety Report 7526085-1 (Version None)
Quarter: 2011Q2

REPORT INFORMATION
  Report Type: 
  Country: None (occurrence: None)
  Receive Date: 20110527
  Receipt Date: 20110519
  Transmission Date: 20111010
  Serious: Yes (Death)
  Sender: FDA-Public Use
  Company Number: 2011-1600

PATIENT
  Age: 79 Year
  Sex: Male
  Weight: 77.1 kg

DRUGS (11)
  1. APOKYN [Suspect]
     Indication: PARKINSON'S DISEASE
     Dosage: (0.2 ML),SUBCUTANEOUS
     Route: 058
     Dates: start: 20110516, end: 20110518
  2. FLUTICASONE NASAL SPRAY (FLUTICASONE) [Concomitant]
  3. CELEXA [Concomitant]
  4. JANUVIA (SITAGLIPTIN) (ALL OTHER THERAPEUTIC PRODUCTS) [Concomitant]
  5. MIRAPEX [Concomitant]
  6. RAPAFLO (SILODOSIN) (ALL OTHER THERAPEUTIC PRODUCTS) [Concomitant]
  7. TIGAN [Suspect]
     Indication: PROPHYLAXIS OF NAUSEA AND VOMITING
     Dosage: (3 IN 1 D),ORAL
     Route: 048
     Dates: start: 20110513, end: 20110518
  8. SINEMET [Concomitant]
  9. GLYCOPYRROLATE [Concomitant]
  10. GLUCOPHAGE [Concomitant]
  11. AMBIEN CR [Concomitant]

REACTIONS (1)
  - DEATH [None]
